FAERS Safety Report 7592109-9 (Version None)
Quarter: 2011Q3

REPORT INFORMATION
  Report Type: 
  Country: None (occurrence: None)
  Receive Date: 20110705
  Receipt Date: 20110705
  Transmission Date: 20111222
  Serious: Yes (Hospitalization)
  Sender: FDA-Public Use
  Company Number: None

PATIENT
  Age: 15 Year
  Sex: Female
  Weight: 50 kg

DRUGS (1)
  1. ISONIAZID [Suspect]
     Indication: LATENT TUBERCULOSIS
     Dosage: 1 TAB QDAY PO
     Route: 048

REACTIONS (5)
  - DIARRHOEA [None]
  - CONVULSION [None]
  - VOMITING [None]
  - NAUSEA [None]
  - CARBON DIOXIDE DECREASED [None]
